FAERS Safety Report 6633974-9 (Version None)
Quarter: 2010Q1

REPORT INFORMATION
  Report Type: 
  Country: None (occurrence: None)
  Receive Date: 20100315
  Receipt Date: 20100308
  Transmission Date: 20100710
  Serious: Yes (Death)
  Sender: FDA-Public Use
  Company Number: -ORACLE-2010S1000121

PATIENT
  Age: 68 Year
  Sex: Male
  Weight: 78 kg

DRUGS (5)
  1. CUBICIN [Suspect]
     Indication: DIABETIC FOOT INFECTION
     Route: 042
     Dates: start: 20091006, end: 20091102
  2. CUBICIN [Suspect]
     Route: 042
     Dates: start: 20091006, end: 20091102
  3. CUBICIN [Suspect]
     Route: 042
  4. CUBICIN [Suspect]
     Route: 042
  5. CIPROFLOXACIN [Concomitant]
     Indication: DRUG USE FOR UNKNOWN INDICATION

REACTIONS (2)
  - DRUG TOXICITY [None]
  - INCORRECT DOSE ADMINISTERED [None]
